FAERS Safety Report 6644529-4 (Version None)
Quarter: 2010Q1

REPORT INFORMATION
  Report Type: 
  Country: None (occurrence: None)
  Receive Date: 20100317
  Receipt Date: 20100312
  Transmission Date: 20100710
  Serious: Yes (Other)
  Sender: FDA-Public Use
  Company Number: SP02709

PATIENT
  Age: 62 Year
  Sex: Female

DRUGS (9)
  1. VISICOL [Suspect]
     Indication: BOWEL PREPARATION
     Dosage: ORAL
     Route: 048
     Dates: start: 20091202, end: 20091202
  2. DIAZEPAM [Concomitant]
  3. OLMESARTAN MEDOXIMIL [Concomitant]
  4. AMLODIPINE [Concomitant]
  5. ... [Concomitant]
  6. FAMOTIDINE [Concomitant]
  7. MOSAPRIDE CITRATE [Concomitant]
  8. TRIMEBUTINE [Concomitant]
  9. EPERISONE [Concomitant]

REACTIONS (14)
  - ACUTE PRERENAL FAILURE [None]
  - ASCITES [None]
  - BRAIN NATRIURETIC PEPTIDE INCREASED [None]
  - DIARRHOEA [None]
  - HEADACHE [None]
  - HYPOKALAEMIA [None]
  - MALAISE [None]
  - NAUSEA [None]
  - OEDEMA PERIPHERAL [None]
  - PALPITATIONS [None]
  - RASH GENERALISED [None]
  - REFUSAL OF TREATMENT BY PATIENT [None]
  - RENAL FAILURE [None]
  - SWELLING FACE [None]
